FAERS Safety Report 24210738 (Version 2)
Quarter: 2024Q4

REPORT INFORMATION
  Report Type: Spontaneous
  Country: US (occurrence: US)
  Receive Date: 20240814
  Receipt Date: 20241016
  Transmission Date: 20250114
  Serious: Yes (Other)
  Sender: SANOFI AVENTIS
  Company Number: US-SA-SAC20240813000139

PATIENT
  Age: 46 Year
  Sex: Female

DRUGS (2)
  1. DUPIXENT [Suspect]
     Active Substance: DUPILUMAB
     Indication: Dermatitis atopic
     Dosage: 600 MG, 1X
     Route: 058
     Dates: start: 202308, end: 202308
  2. DUPIXENT [Suspect]
     Active Substance: DUPILUMAB
     Indication: Eczema
     Dosage: 300 MG, QOW
     Route: 058
     Dates: start: 2023

REACTIONS (10)
  - Allergy to arthropod sting [Recovered/Resolved]
  - Peripheral swelling [Recovered/Resolved]
  - Oral pruritus [Recovered/Resolved]
  - Loss of consciousness [Recovered/Resolved]
  - Cluster headache [Not Recovered/Not Resolved]
  - Intraocular pressure test abnormal [Not Recovered/Not Resolved]
  - Vision blurred [Not Recovered/Not Resolved]
  - Condition aggravated [Not Recovered/Not Resolved]
  - Eye irritation [Not Recovered/Not Resolved]
  - Injection site swelling [Unknown]

NARRATIVE: CASE EVENT DATE: 20240901
